FAERS Safety Report 8475735-4 (Version None)
Quarter: 2012Q2

REPORT INFORMATION
  Report Type: 
  Country: None (occurrence: None)
  Receive Date: 20120628
  Receipt Date: 20120619
  Transmission Date: 20120825
  Serious: Yes (Other)
  Sender: FDA-Public Use
  Company Number: US-ASTRAZENECA-2012SE41052

PATIENT
  Age: 91 Year
  Sex: Male
  Weight: 57.2 kg

DRUGS (3)
  1. CRESTOR [Suspect]
     Indication: CARDIOVASCULAR DISORDER
     Route: 048
  2. CRESTOR [Suspect]
     Indication: ISCHAEMIC HEART DISEASE PROPHYLAXIS
     Route: 048
  3. HYPOTENSION PILL [Concomitant]
     Indication: HYPOTENSION

REACTIONS (4)
  - INTENTIONAL DRUG MISUSE [None]
  - ATRIAL FIBRILLATION [None]
  - HYPOTENSION [None]
  - DERMATITIS ALLERGIC [None]
